FAERS Safety Report 14224124 (Version 1)
Quarter: 2017Q4

REPORT INFORMATION
  Report Type: Spontaneous
  Country: US (occurrence: US)
  Receive Date: 20171125
  Receipt Date: 20171125
  Transmission Date: 20180321
  Serious: Yes (Other)
  Sender: FDA-Public Use
  Company Number: None

PATIENT
  Age: 52 Year
  Sex: Female

DRUGS (1)
  1. ELIQUIS [Suspect]
     Active Substance: APIXABAN
     Indication: PULMONARY EMBOLISM
     Route: 048
     Dates: start: 20171116, end: 20171124

REACTIONS (14)
  - Arthralgia [None]
  - Dyspnoea [None]
  - Dizziness [None]
  - Back pain [None]
  - Neck pain [None]
  - Swelling face [None]
  - Haemoptysis [None]
  - Pain [None]
  - Asthenia [None]
  - Chest pain [None]
  - Nonspecific reaction [None]
  - Fatigue [None]
  - Therapy change [None]
  - Swelling [None]

NARRATIVE: CASE EVENT DATE: 20171118
